FAERS Safety Report 7080816-6 (Version None)
Quarter: 2010Q4

REPORT INFORMATION
  Report Type: 
  Country: None (occurrence: None)
  Receive Date: 20101103
  Receipt Date: 20101027
  Transmission Date: 20110411
  Serious: Yes (Hospitalization)
  Sender: FDA-Public Use
  Company Number: US-SANOFI-AVENTIS-2010SA066140

PATIENT
  Age: 61 Year
  Sex: Male
  Weight: 80 kg

DRUGS (13)
  1. TAXOTERE [Suspect]
     Indication: PROSTATE CANCER
     Route: 041
     Dates: start: 20100506, end: 20100506
  2. TAXOTERE [Suspect]
     Route: 041
     Dates: start: 20100909, end: 20100909
  3. TAXOTERE [Suspect]
     Route: 041
     Dates: start: 20101007, end: 20101007
  4. ELIGARD [Suspect]
     Indication: PROSTATE CANCER
     Route: 058
     Dates: start: 20100729, end: 20100729
  5. ELIGARD [Suspect]
     Dosage: EVERY 3 MONTH
     Route: 058
     Dates: start: 20100506, end: 20100506
  6. CASODEX [Suspect]
     Indication: PROSTATE CANCER
     Route: 048
     Dates: start: 20100506, end: 20100604
  7. VICODIN [Concomitant]
  8. WELLBUTRIN [Concomitant]
  9. XANAX [Concomitant]
     Dosage: AS NEEDED
  10. PREDNISONE [Concomitant]
  11. MUCINEX [Concomitant]
  12. BUDESONIDE/FORMOTEROL [Concomitant]
  13. ALBUTEROL [Concomitant]

REACTIONS (1)
  - PNEUMONIA [None]
